FAERS Safety Report 6165894-0 (Version None)
Quarter: 2009Q2

REPORT INFORMATION
  Report Type: 
  Country: None (occurrence: None)
  Receive Date: 20090422
  Receipt Date: 20090330
  Transmission Date: 20091009
  Serious: Yes (Death, Other)
  Sender: FDA-Public Use
  Company Number: CLOF-1000489

PATIENT

DRUGS (2)
  1. EVOLTRA (CLOFARABINE) SOLUTION FOR INFUSION [Suspect]
     Indication: ACUTE LEUKAEMIA
  2. ANTI-THYMOCYTE GLOBULIN NOS [Suspect]
     Indication: DRUG USE FOR UNKNOWN INDICATION

REACTIONS (10)
  - ACUTE GRAFT VERSUS HOST DISEASE [None]
  - BACTERIAL SEPSIS [None]
  - CANDIDIASIS [None]
  - CHRONIC GRAFT VERSUS HOST DISEASE [None]
  - DISEASE PROGRESSION [None]
  - DRUG TOXICITY [None]
  - EPSTEIN-BARR VIRUS ASSOCIATED LYMPHOPROLIFERATIVE DISORDER [None]
  - LUNG INFILTRATION [None]
  - VENOOCCLUSIVE DISEASE [None]
  - VIRAL INFECTION [None]
